FAERS Safety Report 11177364 (Version 1)
Quarter: 2015Q2

REPORT INFORMATION
  Report Type: Spontaneous
  Country: US (occurrence: None)
  Receive Date: 20150608
  Receipt Date: 20150608
  Transmission Date: 20150821
  Serious: Yes (Hospitalization)
  Sender: FDA-Public Use
  Company Number: None

PATIENT
  Age: 43 Year
  Sex: Male
  Weight: 90.72 kg

DRUGS (5)
  1. GAIN MAO LING HERBAL SUPPLEMENT [Concomitant]
  2. RAW PROTEIN DIETARY SUPPLEMENT [Concomitant]
  3. MUCINEXD [Concomitant]
  4. LEVOFLOXACIN. [Suspect]
     Active Substance: LEVOFLOXACIN
     Indication: PNEUMONIA
     Dosage: 1 PILL  ONCE DAILY  TAKEN BY MOUTH
     Route: 048
     Dates: start: 20150604, end: 20150604
  5. ZINC LOZENGES [Concomitant]

REACTIONS (3)
  - Hypoaesthesia [None]
  - Paraesthesia [None]
  - Burning sensation [None]

NARRATIVE: CASE EVENT DATE: 20150604
